FAERS Safety Report 7033707-0 (Version None)
Quarter: 2010Q4

REPORT INFORMATION
  Report Type: 
  Country: None (occurrence: None)
  Receive Date: 20101007
  Receipt Date: 20100928
  Transmission Date: 20110411
  Serious: Yes (Hospitalization)
  Sender: FDA-Public Use
  Company Number: DE-GENENTECH-303623

PATIENT

DRUGS (13)
  1. RITUXIMAB [Suspect]
     Indication: HODGKIN'S DISEASE
     Dosage: 375 MG/M2, UNK
     Route: 042
     Dates: start: 20100311
  2. ADRIAMYCIN PFS [Suspect]
     Indication: HODGKIN'S DISEASE
     Dosage: 25 MG/M2, UNK
     Route: 065
     Dates: start: 20100324
  3. ADRIAMYCIN PFS [Suspect]
     Dosage: 35 MG/M2, UNK
     Route: 065
  4. BLEOMYCIN SULFATE [Suspect]
     Indication: HODGKIN'S DISEASE
     Dosage: 10 MG/M2, UNK
     Route: 065
     Dates: start: 20100324
  5. PROCARBAZINE HYDROCHLORIDE [Suspect]
     Indication: HODGKIN'S DISEASE
     Dosage: 100 MG/M2, UNK
     Route: 065
     Dates: start: 20100324
  6. VINCRISTINE [Suspect]
     Indication: HODGKIN'S DISEASE
     Dosage: 1.4 MG/M2, UNK
     Route: 065
     Dates: start: 20100324
  7. VINCRISTINE [Suspect]
     Dosage: 2 MG/M2, UNK
     Route: 065
  8. ETOPOSIDE [Suspect]
     Indication: HODGKIN'S DISEASE
     Dosage: 100 MG/M2, UNK
     Route: 065
     Dates: start: 20100324
  9. ETOPOSIDE [Suspect]
     Dosage: 200 MG/M2, UNK
     Route: 065
  10. CYCLOPHOSPHAMIDE [Suspect]
     Indication: HODGKIN'S DISEASE
     Dosage: 650 MG/M2, UNK
     Route: 065
     Dates: start: 20100324
  11. CYCLOPHOSPHAMIDE [Suspect]
     Dosage: 1250 MG/M2, UNK
     Route: 065
  12. PREDNISONE [Suspect]
     Indication: MALIGNANT LYMPHOID NEOPLASM
     Dosage: 100 MG, UNK
     Route: 065
     Dates: start: 20100324
  13. PREDNISONE [Suspect]
     Dosage: 40 MG, UNK
     Route: 065

REACTIONS (5)
  - ERYTHEMA INFECTIOSUM [None]
  - HERPES ZOSTER [None]
  - IMMUNODEFICIENCY [None]
  - PNEUMONIA CYTOMEGALOVIRAL [None]
  - PYREXIA [None]
